FAERS Safety Report 4848295-4 (Version None)
Quarter: 2005Q4

REPORT INFORMATION
  Report Type: 
  Country: None (occurrence: None)
  Receive Date: 20051206
  Receipt Date: 20051128
  Transmission Date: 20060501
  Serious: Yes (Other)
  Sender: FDA-Public Use
  Company Number: 163-20785-03080173

PATIENT
  Sex: 0

DRUGS (3)
  1. THALOMID [Suspect]
     Indication: RENAL CANCER METASTATIC
     Dosage: 200-400 MG DAILY, ORAL  INCREASING DOSE
     Route: 048
  2. GEMCITABINE (GEMCITABINE) (UNKNOWN) [Suspect]
     Indication: RENAL CANCER METASTATIC
     Dosage: 600 MG/M2,  UNKNOWN   DAYS, 1,8,15
  3. FLUOROURACIL [Suspect]
     Indication: RENAL CANCER METASTATIC
     Dosage: 150 MG/M2,  DAYS 1-21

REACTIONS (3)
  - ANGIOPATHY [None]
  - DRUG INTERACTION [None]
  - PULMONARY EMBOLISM [None]
